FAERS Safety Report 12550616 (Version 1)
Quarter: 2016Q3

REPORT INFORMATION
  Report Type: Spontaneous
  Country: US (occurrence: US)
  Receive Date: 20160712
  Receipt Date: 20160712
  Transmission Date: 20161109
  Serious: Yes (Other)
  Sender: FDA-Public Use
  Company Number: US-CELGENEUS-USA-2016072070

PATIENT
  Age: 80 Year
  Sex: Female

DRUGS (2)
  1. IXAZOMIB [Concomitant]
     Active Substance: IXAZOMIB
     Indication: PRODUCT USED FOR UNKNOWN INDICATION
     Route: 065
  2. REVLIMID [Suspect]
     Active Substance: LENALIDOMIDE
     Indication: PLASMA CELL MYELOMA
     Dosage: 10 MILLIGRAM
     Route: 048
     Dates: start: 20160603, end: 20160706

REACTIONS (5)
  - Fatigue [Unknown]
  - Asthenia [Unknown]
  - Dehydration [Unknown]
  - Neuropathy peripheral [Unknown]
  - Hypophagia [Unknown]

NARRATIVE: CASE EVENT DATE: 20160706
